FAERS Safety Report 7813311-4 (Version None)
Quarter: 2011Q4

REPORT INFORMATION
  Report Type: 
  Country: None (occurrence: None)
  Receive Date: 20111013
  Receipt Date: 20111009
  Transmission Date: 20120403
  Serious: No
  Sender: FDA-Public Use
  Company Number: US-BAYER-2011-097010

PATIENT
  Sex: Female

DRUGS (1)
  1. MIRENA [Suspect]
     Indication: CONTRACEPTION
     Dosage: UNK
     Route: 015
     Dates: start: 20110926

REACTIONS (4)
  - METRORRHAGIA [None]
  - MENSTRUAL DISORDER [None]
  - DYSMENORRHOEA [None]
  - PELVIC PAIN [None]
